FAERS Safety Report 6842182-8 (Version None)
Quarter: 2010Q3

REPORT INFORMATION
  Report Type: 
  Country: None (occurrence: None)
  Receive Date: 20100709
  Receipt Date: 20041109
  Transmission Date: 20110219
  Serious: Yes (Death)
  Sender: FDA-Public Use
  Company Number: WAES 1007PHL00001

PATIENT
  Age: 67 Year
  Sex: Male

DRUGS (6)
  1. ZETIA [Suspect]
     Dosage: PO
     Route: 048
     Dates: start: 20071005
  2. ASPIRIN [Concomitant]
  3. CLOPIDOGREL BISULFATE [Concomitant]
  4. ISOSORBIDE MONONITRATE [Concomitant]
  5. PERINDOPRIL [Concomitant]
  6. SIMVASTATIN [Concomitant]

REACTIONS (1)
  - SEPSIS [None]
